FAERS Safety Report 9319381 (Version 1)
Quarter: 2013Q2

REPORT INFORMATION
  Report Type: Spontaneous
  Country: US (occurrence: None)
  Receive Date: 20130524
  Receipt Date: 20130524
  Transmission Date: 20140414
  Serious: Yes (Hospitalization)
  Sender: FDA-Public Use
  Company Number: 1722306

PATIENT
  Age: 17 Year
  Sex: Male

DRUGS (5)
  1. METHYLPREDNISOLONE [Suspect]
     Indication: COLITIS ULCERATIVE
     Route: 042
  2. INFLIXIMAB [Suspect]
     Indication: COLITIS ULCERATIVE
  3. CULTURELLE [Suspect]
     Indication: COLITIS ULCERATIVE
     Dosage: 10X10^9 CELLS/CAPSULE
     Route: 048
  4. METRONIDAZOLE [Concomitant]
  5. VANCOMYCIN [Concomitant]

REACTIONS (2)
  - Lactobacillus infection [None]
  - Bacteraemia [None]
